FAERS Safety Report 5209989-4 (Version None)
Quarter: 2006Q4

REPORT INFORMATION
  Report Type: 
  Country: None (occurrence: None)
  Receive Date: 20061130
  Receipt Date: 20040812
  Transmission Date: 20070319
  Serious: Yes (Hospitalization)
  Sender: FDA-Public Use
  Company Number: 2004UW10876

PATIENT
  Age: 68 Year
  Sex: Female
  Weight: 71.6683 kg

DRUGS (17)
  1. ZOMIG [Suspect]
     Dosage: 2 TABLETS
     Dates: start: 20040426
  2. MAXALT [Concomitant]
  3. FROVA [Concomitant]
  4. FOSINOPRIL SODIUM [Concomitant]
  5. LASIX [Concomitant]
  6. POTASSIUM ACETATE [Concomitant]
  7. SYNTHROID [Concomitant]
  8. DHEA [Concomitant]
  9. CLONAZEPAM [Concomitant]
  10. OXYCONTIN [Concomitant]
  11. PREVACID [Concomitant]
  12. PLAVIX [Concomitant]
  13. TOPROL-XL [Concomitant]
  14. LIPITOR [Concomitant]
  15. ASPIRIN [Concomitant]
  16. NORTRIPTYLINE HCL [Concomitant]
  17. LISINOPRIL [Concomitant]

REACTIONS (2)
  - BLOOD PRESSURE INCREASED [None]
  - MYOCARDIAL INFARCTION [None]
